FAERS Safety Report 7861734-X (Version None)
Quarter: 2011Q4

REPORT INFORMATION
  Report Type: 
  Country: None (occurrence: None)
  Receive Date: 20111027
  Receipt Date: 20110929
  Transmission Date: 20120403
  Serious: Yes (Death)
  Sender: FDA-Public Use
  Company Number: CA-ROCHE-1001313

PATIENT
  Sex: Female

DRUGS (11)
  1. PLAQUENIL [Concomitant]
  2. METHYLPREDNISOLONE [Concomitant]
     Route: 042
     Dates: start: 20110405, end: 20110405
  3. PREDNISONE [Concomitant]
  4. DIPHENHYDRAMINE HCL [Concomitant]
     Route: 048
     Dates: start: 20110405, end: 20110405
  5. MABTHERA [Suspect]
     Indication: RHEUMATOID ARTHRITIS
     Route: 042
     Dates: start: 20110322, end: 20110405
  6. ACETAMINOPHEN [Concomitant]
     Route: 048
     Dates: start: 20110405, end: 20110405
  7. SULFATE FERREUX [Concomitant]
  8. METOPROLOL TARTRATE [Concomitant]
  9. ATIVAN [Concomitant]
  10. NEXIUM [Concomitant]
  11. HYDROMORPHONE HCL [Concomitant]

REACTIONS (1)
  - DEATH [None]
